FAERS Safety Report 5896733-0 (Version None)
Quarter: 2008Q3

REPORT INFORMATION
  Report Type: 
  Country: None (occurrence: None)
  Receive Date: 20080924
  Receipt Date: 20071207
  Transmission Date: 20090109
  Serious: Yes (Other)
  Sender: FDA-Public Use
  Company Number: US-ASTRAZENECA-2007UW27964

PATIENT
  Age: 57 Year
  Sex: Male
  Weight: 81.6 kg

DRUGS (2)
  1. SEROQUEL [Suspect]
     Indication: BIPOLAR DISORDER
     Route: 048
     Dates: start: 20071001
  2. VICODIN [Concomitant]

REACTIONS (2)
  - ILL-DEFINED DISORDER [None]
  - SUICIDAL IDEATION [None]
